FAERS Safety Report 24288091 (Version 1)
Quarter: 2024Q3

REPORT INFORMATION
  Report Type: Spontaneous
  Country: NL (occurrence: NL)
  Receive Date: 20240905
  Receipt Date: 20240905
  Transmission Date: 20241016
  Serious: Yes (Other)
  Sender: MERCK
  Company Number: NL-009507513-2409NLD000932

PATIENT
  Age: 19 Year
  Sex: Male
  Weight: 60 kg

DRUGS (7)
  1. NOXAFIL [Suspect]
     Active Substance: POSACONAZOLE
     Indication: Prophylaxis
     Dosage: UNK
     Route: 048
     Dates: start: 201703, end: 201703
  2. NOXAFIL [Suspect]
     Active Substance: POSACONAZOLE
     Dosage: UNK
     Route: 048
     Dates: start: 20180219
  3. METHOTREXATE [Suspect]
     Active Substance: METHOTREXATE
     Indication: Central nervous system lymphoma
  4. CARMUSTINE [Concomitant]
     Active Substance: CARMUSTINE
     Indication: Central nervous system lymphoma
  5. TENIPOSIDE [Concomitant]
     Active Substance: TENIPOSIDE
     Indication: Central nervous system lymphoma
  6. PREDNISOLONE [Concomitant]
     Active Substance: PREDNISOLONE
  7. LEVETIRACETAM [Concomitant]
     Active Substance: LEVETIRACETAM
     Indication: Epilepsy

REACTIONS (1)
  - Drug-induced liver injury [Recovered/Resolved]

NARRATIVE: CASE EVENT DATE: 20170403
